FAERS Safety Report 26010754 (Version 1)
Quarter: 2025Q4

REPORT INFORMATION
  Report Type: Spontaneous
  Country: EU (occurrence: EU)
  Receive Date: 20251107
  Receipt Date: 20251107
  Transmission Date: 20260118
  Serious: Yes (Other)
  Sender: RANBAXY
  Company Number: EU-LRB-01074988

PATIENT
  Age: 54 Year
  Sex: Male
  Weight: 61 kg

DRUGS (1)
  1. ROSUVASTATIN [Suspect]
     Active Substance: ROSUVASTATIN
     Indication: Hypercholesterolaemia
     Dosage: 40 MILLIGRAM, DAILY
     Route: 048
     Dates: start: 20230201

REACTIONS (1)
  - Polymyalgia rheumatica [Recovered/Resolved]
